FAERS Safety Report 7015955-9 (Version None)
Quarter: 2010Q3

REPORT INFORMATION
  Report Type: 
  Country: None (occurrence: None)
  Receive Date: 20100927
  Receipt Date: 20091015
  Transmission Date: 20110219
  Serious: No
  Sender: FDA-Public Use
  Company Number: US-ASTRAZENECA-2009SE15633

PATIENT
  Age: 720 Month
  Sex: Female
  Weight: 54.4 kg

DRUGS (3)
  1. ARIMIDEX [Suspect]
     Indication: BREAST CANCER STAGE I
     Route: 048
     Dates: start: 20081101
  2. MULTI-VITAMIN [Concomitant]
  3. CALCIUM SUPPLEMENT WITH VITAMIN D [Concomitant]

REACTIONS (1)
  - PRODUCT TASTE ABNORMAL [None]
